FAERS Safety Report 15647441 (Version 4)
Quarter: 2019Q2

REPORT INFORMATION
  Report Type: Spontaneous
  Country: CA (occurrence: CA)
  Receive Date: 20181122
  Receipt Date: 20190621
  Transmission Date: 20190711
  Serious: Yes (Other)
  Sender: FDA-Public Use
  Company Number: CA-CELLTRION INC.-2018CA023874

PATIENT

DRUGS (4)
  1. INFLECTRA [Suspect]
     Active Substance: INFLIXIMAB-DYYB
     Indication: CROHN^S DISEASE
     Dosage: 5 MG/KG, UNK (KG WEEK 6 AND Q 8 WEEKS)
     Route: 042
     Dates: start: 20181108
  2. PREDNISONE. [Concomitant]
     Active Substance: PREDNISONE
     Dosage: 10 MG, UNK (TAPERING STARTED AT 50 MG)
     Route: 065
     Dates: start: 201808
  3. INFLECTRA [Suspect]
     Active Substance: INFLIXIMAB-DYYB
     Dosage: 5 MG/KG, UNK (KG WEEK 6 AND Q 8 WEEKS)
     Route: 042
     Dates: start: 20190606
  4. INFLECTRA [Suspect]
     Active Substance: INFLIXIMAB-DYYB
     Dosage: 5 MG/KG, UNK (KG WEEK 6 AND Q 8 WEEKS)
     Route: 042
     Dates: start: 20190410

REACTIONS (4)
  - Aphthous ulcer [Unknown]
  - Arthralgia [Unknown]
  - Anal fissure [Unknown]
  - Off label use [Unknown]
